FAERS Safety Report 5793123-6 (Version None)
Quarter: 2008Q2

REPORT INFORMATION
  Report Type: 
  Country: None (occurrence: None)
  Receive Date: 20080627
  Receipt Date: 20080612
  Transmission Date: 20081010
  Serious: No
  Sender: FDA-Public Use
  Company Number: A0713812A

PATIENT
  Age: 48 Year
  Sex: Male

DRUGS (2)
  1. FLOVENT [Suspect]
     Dosage: 2PUFF AS REQUIRED
     Route: 055
     Dates: start: 20070101
  2. NO CONCURRENT MEDICATION [Concomitant]

REACTIONS (3)
  - ILL-DEFINED DISORDER [None]
  - PHARMACEUTICAL PRODUCT COMPLAINT [None]
  - PULMONARY FUNCTION TEST DECREASED [None]
